FAERS Safety Report 22706096 (Version 4)
Quarter: 2023Q4

REPORT INFORMATION
  Report Type: Spontaneous
  Country: HK (occurrence: HK)
  Receive Date: 20230714
  Receipt Date: 20231006
  Transmission Date: 20240110
  Serious: Yes (Life-Threatening)
  Sender: FDA-Public Use
  Company Number: HK-BAYER-2023A097464

PATIENT
  Age: 45 Year
  Sex: Male
  Weight: 85 kg

DRUGS (1)
  1. ULTRAVIST [Suspect]
     Active Substance: IOPROMIDE
     Indication: Computerised tomogram liver
     Dosage: 120 ML, ONCE, 4.8ML/SEC
     Dates: start: 20230711, end: 20230711

REACTIONS (7)
  - Oxygen saturation decreased [Recovered/Resolved]
  - Dyspnoea [None]
  - Vomiting [None]
  - Dizziness [None]
  - Erythema [None]
  - Skin discolouration [None]
  - Hypotension [None]

NARRATIVE: CASE EVENT DATE: 20230711
